FAERS Safety Report 7610492-2 (Version None)
Quarter: 2011Q3

REPORT INFORMATION
  Report Type: 
  Country: None (occurrence: None)
  Receive Date: 20110715
  Receipt Date: 20091122
  Transmission Date: 20111222
  Serious: Yes (Other)
  Sender: FDA-Public Use
  Company Number: US-BAYER-200940581NA

PATIENT
  Age: 61 Year
  Sex: Male
  Weight: 102 kg

DRUGS (15)
  1. LISINOPRIL [Concomitant]
     Dosage: 10 MG, QD
     Route: 048
     Dates: start: 19980101
  2. ACETYLSALICYLIC ACID SRT [Concomitant]
     Dosage: 325 MG, BID
     Route: 048
  3. PROTAMINE SULFATE [Concomitant]
     Dosage: UNK
     Route: 042
     Dates: start: 20060705, end: 20060705
  4. CARDIOLITE [Concomitant]
     Indication: CARDIAC STRESS TEST
     Dosage: UNK
     Dates: start: 20060606
  5. ZINACEF [Concomitant]
     Dosage: 1.5 G, UNK
     Route: 042
     Dates: start: 20060705
  6. NSAID'S [Concomitant]
     Dosage: AS DIRECTED/AS NEEDED, THROUGHOUT LIFETIME
  7. PLAVIX [Concomitant]
     Dosage: 75 MG, QD
     Route: 048
     Dates: start: 19990101
  8. HEPARIN [Concomitant]
     Dosage: UNK
     Dates: start: 20060705, end: 20060705
  9. LOVENOX [Concomitant]
     Dosage: 1MG/KG TWICE DAILY
     Route: 058
     Dates: start: 20060404
  10. WHOLE BLOOD [Concomitant]
     Dosage: 1 U, UNK
     Route: 042
     Dates: start: 20060706
  11. TRASYLOL [Suspect]
     Indication: POST PROCEDURAL HAEMORRHAGE
     Dosage: 100 ML INFUSED SLOWLY
     Route: 042
     Dates: start: 20060706, end: 20060706
  12. LASIX [Concomitant]
     Dosage: UNK
     Route: 048
     Dates: start: 19980101
  13. METOPROLOL TARTRATE [Concomitant]
     Dosage: 50 MG, QD
     Route: 048
     Dates: end: 20010101
  14. CRESTOR [Concomitant]
     Dosage: 20 MG, QD
     Route: 048
  15. VANCOMYCIN [Concomitant]
     Dosage: 1 G, UNK
     Route: 042
     Dates: start: 20060705

REACTIONS (12)
  - PSYCHIATRIC SYMPTOM [None]
  - RENAL INJURY [None]
  - EMOTIONAL DISTRESS [None]
  - RENAL IMPAIRMENT [None]
  - PAIN [None]
  - FEAR [None]
  - RENAL FAILURE [None]
  - INJURY [None]
  - STRESS [None]
  - UNEVALUABLE EVENT [None]
  - ANHEDONIA [None]
  - ANXIETY [None]
